FAERS Safety Report 10045348 (Version 1)
Quarter: 2014Q1

REPORT INFORMATION
  Report Type: Report from Study
  Country: US (occurrence: US)
  Receive Date: 20140328
  Receipt Date: 20140328
  Transmission Date: 20141002
  Serious: Yes (Other)
  Sender: FDA-Public Use
  Company Number: US-ALEXION PHARMACEUTICALS INC.-A201001928

PATIENT
  Sex: Male

DRUGS (1)
  1. SOLIRIS [Suspect]
     Indication: PAROXYSMAL NOCTURNAL HAEMOGLOBINURIA
     Dosage: UNK

REACTIONS (7)
  - Pulmonary embolism [Unknown]
  - Deep vein thrombosis [Unknown]
  - Ankle fracture [Unknown]
  - Dyspnoea [Unknown]
  - Dysphagia [Unknown]
  - Back pain [Unknown]
  - Fatigue [Unknown]
